FAERS Safety Report 11304517 (Version 1)
Quarter: 2015Q3

REPORT INFORMATION
  Report Type: Spontaneous
  Country: US (occurrence: US)
  Receive Date: 20150723
  Receipt Date: 20150723
  Transmission Date: 20151125
  Serious: No
  Sender: FDA-Public Use
  Company Number: US-JNJFOC-20141006388

PATIENT
  Age: 32 Year
  Sex: Female
  Weight: 72.58 kg

DRUGS (4)
  1. UNSPECIFIED BIRTH CONTROL [Concomitant]
     Active Substance: UNSPECIFIED INGREDIENT
     Indication: CONTRACEPTION
     Route: 065
  2. ZYRTEC [Suspect]
     Active Substance: CETIRIZINE HYDROCHLORIDE
     Indication: MULTIPLE ALLERGIES
     Dosage: 1 PILL PER DAY
     Route: 048
  3. SLEEP AID [Concomitant]
     Active Substance: DIPHENHYDRAMINE HYDROCHLORIDE\DOXYLAMINE SUCCINATE
     Indication: SLEEP DISORDER THERAPY
     Route: 065
  4. ZYRTEC [Suspect]
     Active Substance: CETIRIZINE HYDROCHLORIDE
     Route: 048

REACTIONS (1)
  - Drug ineffective [Unknown]
